FAERS Safety Report 9110728 (Version 1)
Quarter: 2013Q1

REPORT INFORMATION
  Report Type: Spontaneous
  Country: US (occurrence: US)
  Receive Date: 20130219
  Receipt Date: 20130219
  Transmission Date: 20140127
  Serious: Yes (Other)
  Sender: FDA-Public Use
  Company Number: US-BRISTOL-MYERS SQUIBB COMPANY-16859258

PATIENT
  Age: 74 Year
  Sex: Female

DRUGS (12)
  1. ORENCIA [Suspect]
     Indication: RHEUMATOID ARTHRITIS
     Dosage: 3 VIALS
     Route: 042
     Dates: start: 20120808, end: 20120808
  2. NAPROXEN [Concomitant]
  3. ACETYLSALICYLIC ACID [Concomitant]
  4. CHLORTHALIDONE [Concomitant]
  5. ZOCOR [Concomitant]
  6. HYDROCHLOROTHIAZIDE [Concomitant]
  7. PRILOSEC [Concomitant]
  8. NIACIN [Concomitant]
  9. VITAMIN D2 [Concomitant]
  10. LISINOPRIL [Concomitant]
  11. METHOTREXATE [Concomitant]
  12. PREDNISONE [Concomitant]

REACTIONS (1)
  - Urticaria [Recovered/Resolved]
